FAERS Safety Report 7741290-7 (Version None)
Quarter: 2011Q3

REPORT INFORMATION
  Report Type: 
  Country: None (occurrence: None)
  Receive Date: 20110909
  Receipt Date: 20110829
  Transmission Date: 20111222
  Serious: Yes (Other)
  Sender: FDA-Public Use
  Company Number: KR-ELI_LILLY_AND_COMPANY-KR201109000393

PATIENT
  Age: 72 Year
  Sex: Female

DRUGS (5)
  1. HUMALOG MIX 75/25 [Suspect]
     Dosage: 16 U, EACH MORNING
     Route: 058
     Dates: start: 20110826
  2. HUMALOG MIX 75/25 [Suspect]
     Dosage: 16 U, EACH EVENING
     Dates: start: 20110820, end: 20110826
  3. HUMALOG MIX 75/25 [Suspect]
     Indication: TYPE 2 DIABETES MELLITUS
     Dosage: 46 U MORNINGS; 30 U EVENINGS
     Route: 058
     Dates: start: 20110601
  4. HUMALOG MIX 75/25 [Suspect]
     Dosage: 20 U, EACH MORNING
     Route: 058
     Dates: start: 20110820, end: 20110826
  5. HUMALOG MIX 75/25 [Suspect]
     Dosage: 12 U, EACH EVENING
     Route: 058

REACTIONS (3)
  - HYPOGLYCAEMIC UNCONSCIOUSNESS [None]
  - HYPOPHAGIA [None]
  - DECREASED APPETITE [None]
